FAERS Safety Report 19025195 (Version 1)
Quarter: 2021Q1

REPORT INFORMATION
  Report Type: Spontaneous
  Country: US (occurrence: US)
  Receive Date: 20210317
  Receipt Date: 20210317
  Transmission Date: 20210420
  Serious: Yes (Life-Threatening)
  Sender: FDA-Public Use
  Company Number: None

PATIENT
  Age: 86 Year
  Sex: Female

DRUGS (2)
  1. HEPARIN [Suspect]
     Active Substance: HEPARIN SODIUM
  2. WARFARIN [Suspect]
     Active Substance: WARFARIN

REACTIONS (2)
  - Haemoglobin decreased [None]
  - Flank pain [None]

NARRATIVE: CASE EVENT DATE: 20210317
